FAERS Safety Report 23113293 (Version 1)
Quarter: 2023Q4

REPORT INFORMATION
  Report Type: Spontaneous
  Country: US (occurrence: US)
  Receive Date: 20231027
  Receipt Date: 20231027
  Transmission Date: 20240110
  Serious: No
  Sender: FDA-Public Use
  Company Number: US-OPELLA-2023OHG008924

PATIENT

DRUGS (1)
  1. ICY HOT PRO NO-MESS [Suspect]
     Active Substance: CAMPHOR (SYNTHETIC)\MENTHOL
     Indication: Myalgia

REACTIONS (1)
  - Burning sensation [Unknown]
